FAERS Safety Report 11158888 (Version 1)
Quarter: 2015Q2

REPORT INFORMATION
  Report Type: Spontaneous
  Country: US (occurrence: US)
  Receive Date: 20150603
  Receipt Date: 20150603
  Transmission Date: 20150821
  Serious: Yes (Other)
  Sender: FDA-Public Use
  Company Number: US-PFIZER INC-2015180076

PATIENT
  Age: 56 Year
  Sex: Female
  Weight: 77 kg

DRUGS (3)
  1. METFORMIN [Concomitant]
     Active Substance: METFORMIN HYDROCHLORIDE
     Indication: DIABETES MELLITUS
     Dosage: UNK
  2. LISINOPRIL. [Concomitant]
     Active Substance: LISINOPRIL
     Indication: HYPERTENSION
     Dosage: UNK
  3. ANBESOL MAXIMUM STRENGTH [Suspect]
     Active Substance: BENZOCAINE
     Indication: TOOTHACHE
     Dosage: UNK, AS NEEDED (1-3 TIMES A DAY AND A LITTLE SQUEEZE)

REACTIONS (5)
  - Loss of consciousness [Recovered/Resolved]
  - Product label issue [Unknown]
  - Alcohol interaction [Recovered/Resolved]
  - Vomiting [Recovered/Resolved]
  - Dizziness [Recovered/Resolved]

NARRATIVE: CASE EVENT DATE: 20150525
